FAERS Safety Report 9571030 (Version 1)
Quarter: 2013Q4

REPORT INFORMATION
  Report Type: Spontaneous
  Country: US (occurrence: US)
  Receive Date: 20131001
  Receipt Date: 20131001
  Transmission Date: 20140711
  Serious: Yes (Hospitalization, Other)
  Sender: FDA-Public Use
  Company Number: US-SUN PHARMACEUTICAL INDUSTRIES LTD-2013SUN04765

PATIENT
  Age: 50 Year
  Sex: Female
  Weight: 103 kg

DRUGS (12)
  1. LITHIUM CARBONATE TABLETS, USP 300MG [Suspect]
     Indication: BIPOLAR DISORDER
     Route: 065
  2. METHYLENE BLUE [Suspect]
     Indication: PRODUCT USED FOR UNKNOWN INDICATION
     Dosage: 7.5 MG/KG, UNK
     Route: 065
  3. INSULIN [Concomitant]
  4. ATENOLOL [Concomitant]
  5. VERAPAMIL [Concomitant]
  6. SYNTHROID [Concomitant]
  7. GABAPENTIN [Concomitant]
  8. OXYBUTYNIN [Concomitant]
  9. LORAZEPAM [Concomitant]
  10. SIMVASTATIN [Concomitant]
  11. CARBAMAZEPINE [Concomitant]
  12. LAMOTRIGINE [Concomitant]

REACTIONS (3)
  - Toxic encephalopathy [Recovering/Resolving]
  - Diabetes insipidus [Recovering/Resolving]
  - Hypernatraemia [Recovering/Resolving]
